FAERS Safety Report 11011677 (Version 2)
Quarter: 2015Q2

REPORT INFORMATION
  Report Type: Spontaneous
  Country: FR (occurrence: FR)
  Receive Date: 20150410
  Receipt Date: 20150413
  Transmission Date: 20150821
  Serious: Yes (Death, Hospitalization, Other)
  Sender: FDA-Public Use
  Company Number: FR-ASTRAZENECA-2015SE31877

PATIENT
  Age: 30083 Day
  Sex: Male

DRUGS (12)
  1. ORBENINE [Suspect]
     Active Substance: CLOXACILLIN SODIUM
     Indication: ARTHRITIS INFECTIVE
     Route: 042
     Dates: start: 20140209, end: 20140213
  2. DOLIPRANE [Concomitant]
     Active Substance: ACETAMINOPHEN
  3. KARDEGIC [Concomitant]
     Active Substance: ASPIRIN LYSINE
  4. ERYTHROMYCINE [Concomitant]
     Active Substance: ERYTHROMYCIN
  5. FUROSEMIDE. [Concomitant]
     Active Substance: FUROSEMIDE
  6. CORDARONE [Concomitant]
     Active Substance: AMIODARONE HYDROCHLORIDE
  7. CALCIPARINE [Concomitant]
     Active Substance: HEPARIN CALCIUM
  8. OFLOXACINE MYLAN 200 MG/40 ML SOLUTION POUR PERFUSION [Suspect]
     Active Substance: OFLOXACIN
     Indication: ARTHRITIS INFECTIVE
     Route: 048
     Dates: start: 20140205, end: 20140219
  9. SALBUTAMOL [Concomitant]
     Active Substance: ALBUTEROL
  10. ORBENINE [Suspect]
     Active Substance: CLOXACILLIN SODIUM
     Indication: ARTHRITIS INFECTIVE
     Route: 042
     Dates: start: 20140205, end: 20140209
  11. INEXIUM [Suspect]
     Active Substance: ESOMEPRAZOLE
     Route: 048
  12. TOPALGIC [Concomitant]
     Active Substance: TRAMADOL

REACTIONS (13)
  - Red blood cell count decreased [Unknown]
  - Arthritis [Unknown]
  - Herpes virus infection [Unknown]
  - Haemoglobin decreased [Unknown]
  - Sepsis [Unknown]
  - Candida infection [Unknown]
  - Death [Fatal]
  - Thrombocytopenia [Unknown]
  - Dyspnoea [Unknown]
  - Drug level increased [Unknown]
  - Staphylococcal sepsis [Unknown]
  - Renal failure [Unknown]
  - Bronchitis [Unknown]

NARRATIVE: CASE EVENT DATE: 20140203
